FAERS Safety Report 16860756 (Version 1)
Quarter: 2019Q3

REPORT INFORMATION
  Report Type: Report from Study
  Country: ES (occurrence: ES)
  Receive Date: 20190927
  Receipt Date: 20190927
  Transmission Date: 20191005
  Serious: Yes (Other)
  Sender: FDA-Public Use
  Company Number: ES-TEVA-2019-ES-1113479

PATIENT
  Age: 29 Year
  Sex: Female

DRUGS (5)
  1. DEXKETOPROFENO (7312A) [Suspect]
     Active Substance: DEXKETOPROFEN
     Indication: ANALGESIC THERAPY
     Dosage: 50MG 8 HOURS
     Route: 042
     Dates: start: 20180928, end: 20181002
  2. LINEZOLID (1279A) [Suspect]
     Active Substance: LINEZOLID
     Indication: RESPIRATORY TRACT INFECTION
     Dosage: 600MG EVERY 12 HOURS
     Route: 042
     Dates: start: 20180923, end: 20180926
  3. FUROSEMIDA (1615A) [Suspect]
     Active Substance: FUROSEMIDE
     Indication: POLYURIA
     Dosage: 20MG EVERY 12 HOURS
     Route: 042
     Dates: start: 20180925, end: 20180927
  4. PROPOFOL (2373A) [Suspect]
     Active Substance: PROPOFOL
     Indication: SEDATION
     Dosage: CONTINUOUS INFUSION
     Route: 041
     Dates: start: 20180923, end: 20180925
  5. LEVOFLOXACINO (2791A) [Suspect]
     Active Substance: LEVOFLOXACIN
     Indication: RESPIRATORY TRACT INFECTION
     Dosage: 500 MG EVERY 24 HOURS
     Route: 042
     Dates: start: 20180923, end: 20180927

REACTIONS (1)
  - Hyperamylasaemia [Recovered/Resolved]

NARRATIVE: CASE EVENT DATE: 20181001
